FAERS Safety Report 19963305 (Version 2)
Quarter: 2022Q2

REPORT INFORMATION
  Report Type: Spontaneous
  Country: RU (occurrence: RU)
  Receive Date: 20211018
  Receipt Date: 20220406
  Transmission Date: 20220720
  Serious: Yes (Death, Hospitalization, Other)
  Sender: FDA-Public Use
  Company Number: RU-NOVARTISPH-NVSC2021RU230489

PATIENT
  Age: 75 Year
  Sex: Female

DRUGS (3)
  1. MIDOSTAURIN [Suspect]
     Active Substance: MIDOSTAURIN
     Indication: Systemic mastocytosis
     Dosage: 25 MG, BID (1ST WEEK)
     Route: 065
     Dates: start: 20210901
  2. MIDOSTAURIN [Suspect]
     Active Substance: MIDOSTAURIN
     Dosage: 50 MG, BID (INCREASED TO 50 MG AFTER 1 WEEK AND AN ATTEMPT TO INCREASE FURTHER AFTER 2ND WEEK)
     Route: 065
     Dates: start: 202109
  3. RABEPRAZOLE [Concomitant]
     Active Substance: RABEPRAZOLE
     Indication: Diarrhoea
     Dosage: 20 MG, QD
     Route: 065

REACTIONS (20)
  - Death [Fatal]
  - Ascites [Unknown]
  - Diarrhoea [Unknown]
  - Femur fracture [Unknown]
  - Nausea [Unknown]
  - Splenomegaly [Unknown]
  - Intra-abdominal fluid collection [Unknown]
  - Haemoglobin decreased [Unknown]
  - Platelet count decreased [Unknown]
  - Basophil count abnormal [Unknown]
  - Myelocyte percentage [Unknown]
  - Metamyelocyte percentage [Unknown]
  - Monocyte count increased [Unknown]
  - Blood albumin decreased [Unknown]
  - Alanine aminotransferase abnormal [Unknown]
  - Aspartate aminotransferase abnormal [Unknown]
  - Blood creatinine decreased [Unknown]
  - Underdose [Unknown]
  - Asthenia [Unknown]
  - COVID-19 [Unknown]

NARRATIVE: CASE EVENT DATE: 20210926
